FAERS Safety Report 6543918-6 (Version None)
Quarter: 2010Q1

REPORT INFORMATION
  Report Type: 
  Country: None (occurrence: None)
  Receive Date: 20100119
  Receipt Date: 20100119
  Transmission Date: 20100710
  Serious: Yes (Disabling)
  Sender: FDA-Public Use
  Company Number: None

PATIENT
  Age: 88 Year
  Sex: Female
  Weight: 65.7716 kg

DRUGS (1)
  1. TYLENOL (CAPLET) [Suspect]
     Indication: RHEUMATOID ARTHRITIS
     Dosage: 2 PILLS EVERYDAY PO
     Route: 048

REACTIONS (3)
  - FUNGAL INFECTION [None]
  - PRODUCT QUALITY ISSUE [None]
  - RHEUMATOID ARTHRITIS [None]
